FAERS Safety Report 4886246-7 (Version None)
Quarter: 2006Q1

REPORT INFORMATION
  Report Type: 
  Country: None (occurrence: None)
  Receive Date: 20060120
  Receipt Date: 20060116
  Transmission Date: 20060701
  Serious: Yes (Other)
  Sender: FDA-Public Use
  Company Number: PHBS2006BR00995

PATIENT
  Age: 31 Year
  Sex: Male
  Weight: 52 kg

DRUGS (3)
  1. TRILEPTAL [Suspect]
     Indication: EPILEPSY
     Dosage: 600 MG, TID
     Route: 048
     Dates: start: 20051001
  2. LAMOTRIGINE [Concomitant]
     Indication: EPILEPSY
     Dosage: UNK, BID
     Route: 048
  3. HIDANTAL [Concomitant]
     Indication: EPILEPSY
     Dosage: UNK, BID
     Route: 048

REACTIONS (7)
  - ABASIA [None]
  - AGGRESSION [None]
  - ASTHENIA [None]
  - DIZZINESS [None]
  - GAZE PALSY [None]
  - LOSS OF CONSCIOUSNESS [None]
  - TONGUE DISORDER [None]
